FAERS Safety Report 10866070 (Version 4)
Quarter: 2015Q3

REPORT INFORMATION
  Report Type: Report from Study
  Country: JP (occurrence: JP)
  Receive Date: 20150225
  Receipt Date: 20150722
  Transmission Date: 20151125
  Serious: Yes (Hospitalization, Other)
  Sender: FDA-Public Use
  Company Number: JP-ROCHE-1541777

PATIENT
  Age: 83 Year
  Sex: Male
  Weight: 49 kg

DRUGS (32)
  1. METHOXY POLYETHYLENE GLYCOL-EPOETIN BETA [Suspect]
     Active Substance: METHOXY POLYETHYLENE GLYCOL-EPOETIN BETA
     Indication: NEPHROGENIC ANAEMIA
     Route: 042
     Dates: start: 20130907
  2. MOBIC [Concomitant]
     Active Substance: MELOXICAM
     Indication: BACK PAIN
     Route: 048
  3. KALIMATE [Concomitant]
     Active Substance: CALCIUM POLYSTYRENE SULFONATE
     Indication: HYPERKALAEMIA
     Route: 048
  4. RESTAMIN [Concomitant]
     Active Substance: DIPHENHYDRAMINE
     Dosage: DOSAGE IS UNCERTAIN.
     Route: 003
  5. METHOXY POLYETHYLENE GLYCOL-EPOETIN BETA [Suspect]
     Active Substance: METHOXY POLYETHYLENE GLYCOL-EPOETIN BETA
     Indication: NEPHROGENIC ANAEMIA
     Route: 042
     Dates: start: 20150516
  6. ROCALTROL [Concomitant]
     Active Substance: CALCITRIOL
     Dosage: DOSAGE IS UNCERTAIN.
     Route: 065
  7. TANKARU [Concomitant]
     Indication: HYPERPHOSPHATAEMIA
     Route: 048
  8. PALUX [Concomitant]
     Active Substance: ALPROSTADIL
     Dosage: DOSAGE IS UNCERTAIN.
     Route: 065
  9. RYTHMODAN [Concomitant]
     Active Substance: DISOPYRAMIDE
     Dosage: DOSAGE IS UNCERTAIN.
     Route: 048
  10. UREA. [Concomitant]
     Active Substance: UREA
     Dosage: DOSAGE IS UNCERTAIN.
     Route: 065
  11. FESIN (JAPAN) [Concomitant]
     Active Substance: IRON SUCROSE
     Dosage: DOSAGE IS UNCERTAIN.
     Route: 065
  12. PRECIPITATED CALCIUM CARBONATE [Concomitant]
     Active Substance: CALCIUM CARBONATE
     Indication: HYPERPHOSPHATAEMIA
     Route: 048
  13. METHOXY POLYETHYLENE GLYCOL-EPOETIN BETA [Suspect]
     Active Substance: METHOXY POLYETHYLENE GLYCOL-EPOETIN BETA
     Indication: NEPHROGENIC ANAEMIA
     Route: 042
     Dates: start: 20140517
  14. BAYASPIRIN [Concomitant]
     Active Substance: ASPIRIN
     Indication: ANGINA PECTORIS
     Route: 048
  15. SARPOGRELATE HYDROCHLORIDE [Concomitant]
     Active Substance: SARPOGRELATE
     Indication: PERIPHERAL ARTERIAL OCCLUSIVE DISEASE
     Route: 048
  16. FOLIAMIN [Concomitant]
     Active Substance: FOLIC ACID
     Dosage: DOSAGE IS UNCERTAIN.
     Route: 048
  17. LIDOMEX [Concomitant]
     Active Substance: PREDNISOLONE VALERATE ACETATE
     Dosage: DOSAGE IS UNCERTAIN.
     Route: 003
  18. LOPEMIN (JAPAN) [Concomitant]
     Dosage: DOSAGE IS UNCERTAIN.
     Route: 048
  19. MAINTATE [Concomitant]
     Active Substance: BISOPROLOL FUMARATE
     Indication: CARDIAC DISORDER
     Route: 048
  20. SUNRYTHM [Concomitant]
     Active Substance: PILSICAINIDE HYDROCHLORIDE
     Dosage: DOSAGE IS UNCERTAIN.
     Route: 048
  21. DIGOSIN [Concomitant]
     Active Substance: DIGOXIN
     Dosage: DOSAGE IS UNCERTAIN.
     Route: 065
  22. D-ALFA [Concomitant]
     Dosage: DOSAGE IS UNCERTAIN.
     Route: 048
  23. BESOFTEN [Concomitant]
     Active Substance: SODIUM ALGINATE
     Dosage: DOSAGE IS UNCERTAIN.
     Route: 003
  24. METHOXY POLYETHYLENE GLYCOL-EPOETIN BETA [Suspect]
     Active Substance: METHOXY POLYETHYLENE GLYCOL-EPOETIN BETA
     Indication: NEPHROGENIC ANAEMIA
     Route: 042
     Dates: start: 20140526
  25. MS ONSHIPPU [Concomitant]
     Dosage: DOSAGE IS UNCERTAIN.
     Route: 061
  26. LAC-B [Concomitant]
     Active Substance: BIFIDOBACTERIUM SPP.
     Dosage: DOSAGE IS UNCERTAIN.
     Route: 048
  27. PLAVIX [Concomitant]
     Active Substance: CLOPIDOGREL BISULFATE
     Indication: ANGINA PECTORIS
     Route: 048
  28. METHYCOBAL [Concomitant]
     Active Substance: METHYLCOBALAMIN
     Dosage: DOSAGE IS UNCERTAIN.
     Route: 065
  29. VASOLAN [Concomitant]
     Active Substance: VERAPAMIL HYDROCHLORIDE
     Indication: TACHYCARDIA
     Route: 048
  30. OMEPRAL [Concomitant]
     Active Substance: OMEPRAZOLE
     Indication: GASTRIC ULCER
     Route: 048
  31. TAMIFLU [Concomitant]
     Active Substance: OSELTAMIVIR PHOSPHATE
     Dosage: DOSAGE IS UNCERTAIN.
     Route: 048
  32. VOLTAREN [Concomitant]
     Active Substance: DICLOFENAC SODIUM
     Dosage: DOSAGE IS UNCERTAIN.
     Route: 065

REACTIONS (4)
  - Shock [Unknown]
  - Catheterisation cardiac [Not Recovered/Not Resolved]
  - Left ventricular failure [Recovering/Resolving]
  - Angina pectoris [Recovering/Resolving]

NARRATIVE: CASE EVENT DATE: 201406
